FAERS Safety Report 20707785 (Version 2)
Quarter: 2023Q2

REPORT INFORMATION
  Report Type: Spontaneous
  Country: CH (occurrence: CH)
  Receive Date: 20220413
  Receipt Date: 20230622
  Transmission Date: 20230721
  Serious: Yes (Hospitalization)
  Sender: FDA-Public Use
  Company Number: None

PATIENT
  Age: 86 Year
  Sex: Male
  Weight: 64 kg

DRUGS (28)
  1. FENTANYL [Suspect]
     Active Substance: FENTANYL
     Indication: Pain
     Route: 062
     Dates: start: 20220301, end: 20220304
  2. FENTANYL [Suspect]
     Active Substance: FENTANYL
     Route: 062
     Dates: start: 20220304, end: 20220309
  3. HALDOL [Suspect]
     Active Substance: HALOPERIDOL
     Indication: Agitation
     Route: 048
     Dates: start: 20220307, end: 20220309
  4. HALDOL [Suspect]
     Active Substance: HALOPERIDOL
     Dosage: 0.5 MG 2X/J ; AS NECESSARY
     Route: 048
     Dates: start: 20220228, end: 20220302
  5. HALDOL [Suspect]
     Active Substance: HALOPERIDOL
     Dosage: 0.5 MG 3X/J  ; AS NECESSARY
     Route: 048
     Dates: start: 20220302, end: 20220316
  6. HALDOL [Suspect]
     Active Substance: HALOPERIDOL
     Dosage: 0.5 MG 3X/J  ; AS NECESSARY
     Route: 042
     Dates: start: 20220303, end: 20220316
  7. MORPHINE HYDROCHLORIDE [Concomitant]
     Active Substance: MORPHINE HYDROCHLORIDE
     Indication: Pain
     Route: 042
     Dates: start: 20220307, end: 20220310
  8. MORPHINE HYDROCHLORIDE [Concomitant]
     Active Substance: MORPHINE HYDROCHLORIDE
     Indication: Pain
     Route: 048
     Dates: start: 20220228, end: 20220307
  9. TAMSULOSIN HYDROCHLORIDE [Concomitant]
     Active Substance: TAMSULOSIN HYDROCHLORIDE
     Dates: start: 20220305, end: 20220310
  10. MOVICOL [Concomitant]
     Active Substance: POLYETHYLENE GLYCOL 3350\POTASSIUM CHLORIDE\SODIUM BICARBONATE\SODIUM CHLORIDE
     Dates: start: 20220305, end: 20220309
  11. DAFALGAN [Concomitant]
     Active Substance: ACETAMINOPHEN
     Dates: end: 20220316
  12. METOCLOPRAMIDE HYDROCHLORIDE [Concomitant]
     Active Substance: METOCLOPRAMIDE HYDROCHLORIDE
     Dates: start: 20220304, end: 20220316
  13. SODIUM PICOSULFATE [Concomitant]
     Active Substance: SODIUM PICOSULFATE
     Dates: end: 20220315
  14. FIG FRUIT OIL\SORBITOL [Concomitant]
     Active Substance: FIG FRUIT OIL\SORBITOL
     Dates: end: 20220315
  15. VITAMIN B12 [Concomitant]
     Active Substance: CYANOCOBALAMIN
     Dates: start: 20220228, end: 20220310
  16. FOLIC ACID [Concomitant]
     Active Substance: FOLIC ACID
     Dates: end: 20220310
  17. TRAVAD PHOSPHATE [Concomitant]
     Dates: start: 20220228
  18. CHOLECALCIFEROL [Concomitant]
     Active Substance: CHOLECALCIFEROL
     Dates: start: 20220228, end: 20220310
  19. VENTOLIN [Concomitant]
     Active Substance: ALBUTEROL SULFATE
     Route: 055
     Dates: end: 20220316
  20. BULBOID [Concomitant]
     Route: 054
  21. XELJANZ [Concomitant]
     Active Substance: TOFACITINIB CITRATE
  22. SPIRIVA [Concomitant]
     Active Substance: TIOTROPIUM BROMIDE MONOHYDRATE
     Route: 055
     Dates: end: 20220318
  23. PREDNISONE [Concomitant]
     Active Substance: PREDNISONE
  24. METOPROLOL SUCCINATE [Concomitant]
     Active Substance: METOPROLOL SUCCINATE
  25. LISINOPRIL [Concomitant]
     Active Substance: LISINOPRIL
  26. NEXIUM [Concomitant]
     Active Substance: ESOMEPRAZOLE MAGNESIUM
  27. ATORVASTATIN [Concomitant]
     Active Substance: ATORVASTATIN
     Dates: end: 20220310
  28. ASPIRIN [Concomitant]
     Active Substance: ASPIRIN

REACTIONS (7)
  - Depressed level of consciousness [Not Recovered/Not Resolved]
  - Nuchal rigidity [Not Recovered/Not Resolved]
  - Hyperreflexia [Not Recovered/Not Resolved]
  - Photophobia [Not Recovered/Not Resolved]
  - Muscle rigidity [Not Recovered/Not Resolved]
  - Pupillary disorder [Not Recovered/Not Resolved]
  - Agitation [Not Recovered/Not Resolved]

NARRATIVE: CASE EVENT DATE: 20220308
